FAERS Safety Report 5888055-9 (Version None)
Quarter: 2008Q3

REPORT INFORMATION
  Report Type: 
  Country: None (occurrence: None)
  Receive Date: 20080918
  Receipt Date: 20080912
  Transmission Date: 20090109
  Serious: Yes (Death)
  Sender: FDA-Public Use
  Company Number: CA-CELGENEUS-028-21880-08090819

PATIENT
  Sex: Male
  Weight: 85.5 kg

DRUGS (2)
  1. REVLIMID [Suspect]
     Indication: MYELODYSPLASTIC SYNDROME
     Route: 048
     Dates: start: 20080228, end: 20080713
  2. MELPHALAN [Suspect]
     Indication: MYELODYSPLASTIC SYNDROME
     Route: 065
     Dates: start: 20080228, end: 20080712

REACTIONS (7)
  - ABDOMINAL PAIN [None]
  - CARDIAC ARREST [None]
  - EAR INFECTION [None]
  - FEBRILE NEUTROPENIA [None]
  - HAEMORRHAGE [None]
  - RECTAL HAEMORRHAGE [None]
  - SCROTAL SWELLING [None]
